FAERS Safety Report 7749985-6 (Version None)
Quarter: 2011Q3

REPORT INFORMATION
  Report Type: 
  Country: None (occurrence: None)
  Receive Date: 20110914
  Receipt Date: 20110907
  Transmission Date: 20111222
  Serious: Yes (Hospitalization)
  Sender: FDA-Public Use
  Company Number: DE-SANOFI-AVENTIS-2010SA003594

PATIENT
  Age: 61 Year
  Sex: Female
  Weight: 86 kg

DRUGS (6)
  1. DOCETAXEL [Suspect]
     Indication: BREAST CANCER
     Route: 041
     Dates: start: 20091217, end: 20091217
  2. DOCETAXEL [Suspect]
     Route: 041
  3. CYCLOPHOSPHAMIDE [Concomitant]
     Indication: BREAST CANCER
     Dosage: FOUR CYCLES TOTAL
     Route: 042
  4. DEXAMETHASONE [Concomitant]
     Indication: PROPHYLAXIS
     Route: 048
     Dates: start: 20091217, end: 20091217
  5. EPIRUBICIN [Concomitant]
     Indication: BREAST CANCER
     Dosage: FOUR CYCLES TOTAL
     Route: 042
  6. BERLTHYROX [Concomitant]
     Indication: HYPOTHYROIDISM
     Route: 048

REACTIONS (5)
  - GENERAL PHYSICAL HEALTH DETERIORATION [None]
  - FATIGUE [None]
  - DEPRESSED MOOD [None]
  - NAUSEA [None]
  - FACE OEDEMA [None]
